FAERS Safety Report 22587310 (Version 1)
Quarter: 2023Q2

REPORT INFORMATION
  Report Type: Spontaneous
  Country: US (occurrence: US)
  Receive Date: 20230612
  Receipt Date: 20230612
  Transmission Date: 20230722
  Serious: No
  Sender: FDA-Public Use
  Company Number: US-TEVA-2023-US-2891436

PATIENT
  Age: 59 Year
  Sex: Male

DRUGS (3)
  1. AMPHETAMINE SULFATE\DEXTROAMPHETAMINE [Suspect]
     Active Substance: AMPHETAMINE SULFATE\DEXTROAMPHETAMINE
     Indication: Attention deficit hyperactivity disorder
     Dosage: 90 MILLIGRAM DAILY; 60MG IN THE MORNING AND 30MG IN THE EVENING
     Route: 065
  2. AMPHETAMINE SULFATE\DEXTROAMPHETAMINE [Suspect]
     Active Substance: AMPHETAMINE SULFATE\DEXTROAMPHETAMINE
     Indication: Depression
  3. OXYCODONE [Concomitant]
     Active Substance: OXYCODONE
     Indication: Osteoarthritis
     Route: 065

REACTIONS (3)
  - Drug screen positive [Unknown]
  - Incorrect dose administered [Unknown]
  - Product use in unapproved indication [Unknown]
